FAERS Safety Report 15494032 (Version 1)
Quarter: 2018Q4

REPORT INFORMATION
  Report Type: Spontaneous
  Country: US (occurrence: US)
  Receive Date: 20181012
  Receipt Date: 20181012
  Transmission Date: 20190205
  Serious: Yes (Other)
  Sender: FDA-Public Use
  Company Number: US-NEOS THERAPEUTICS, LP-2018NEO00109

PATIENT
  Age: 9 Year
  Weight: 40.64 kg

DRUGS (1)
  1. COTEMPLA XR-ODT [Suspect]
     Active Substance: METHYLPHENIDATE
     Indication: ATTENTION DEFICIT/HYPERACTIVITY DISORDER
     Dosage: 17.3 MG, 1X/DAY, EVERY AM
     Route: 048
     Dates: start: 20171220

REACTIONS (2)
  - Arachnoid cyst [Unknown]
  - Seizure [Unknown]

NARRATIVE: CASE EVENT DATE: 201809
